FAERS Safety Report 23394353 (Version 1)
Quarter: 2024Q1

REPORT INFORMATION
  Report Type: Report from Study
  Country: RO (occurrence: RO)
  Receive Date: 20240111
  Receipt Date: 20240111
  Transmission Date: 20240410
  Serious: Yes (Death, Other)
  Sender: FDA-Public Use
  Company Number: RO-ABBVIE-5582010

PATIENT
  Age: 76 Year
  Sex: Female

DRUGS (3)
  1. CARBIDOPA\LEVODOPA [Suspect]
     Active Substance: CARBIDOPA\LEVODOPA
     Indication: Parkinson^s disease
     Dosage: DM=9.00 DC=4.10 ED=2.50 NRED=0; DMN=0.00 DCN=0.00 EDN=0.00 NREDN=0
     Route: 050
     Dates: start: 20160129, end: 20240103
  2. CARBIDOPA\LEVODOPA [Suspect]
     Active Substance: CARBIDOPA\LEVODOPA
  3. ENALAPRIL [Concomitant]
     Active Substance: ENALAPRIL
     Indication: Essential hypertension
     Dosage: FORM STRENGTH WAS 10 MILLIGRAM?2 TABLETS,1 TABLET IN THE MORNING AND 1 TABLET IN THE EVENING
     Dates: start: 20190104, end: 20240103

REACTIONS (1)
  - Cardio-respiratory arrest [Fatal]

NARRATIVE: CASE EVENT DATE: 20240103
